FAERS Safety Report 4306791-2 (Version None)
Quarter: 2004Q1

REPORT INFORMATION
  Report Type: 
  Country: None (occurrence: None)
  Receive Date: 20040225
  Receipt Date: 20040210
  Transmission Date: 20041129
  Serious: Yes (Life-Threatening, Hospitalization)
  Sender: FDA-Public Use
  Company Number: DE_031212534

PATIENT
  Age: 63 Year
  Sex: Female
  Weight: 80 kg

DRUGS (7)
  1. EVISTA [Suspect]
     Indication: OSTEOPOROSIS
     Dosage: 60 MG/1 IN THE MORNING
     Dates: start: 20020701
  2. IDEOS [Concomitant]
  3. BISOPROLOL [Concomitant]
  4. BEZAFIBRATE [Concomitant]
  5. ISOSORBIDE DINITRATE [Concomitant]
  6. ASS [Concomitant]
  7. ACERCOMP [Concomitant]

REACTIONS (4)
  - OEDEMA PERIPHERAL [None]
  - PAIN IN EXTREMITY [None]
  - PULMONARY EMBOLISM [None]
  - SCIATICA [None]
